FAERS Safety Report 6293818-4 (Version None)
Quarter: 2009Q3

REPORT INFORMATION
  Report Type: 
  Country: None (occurrence: None)
  Receive Date: 20090803
  Receipt Date: 20090724
  Transmission Date: 20100115
  Serious: Yes (Other)
  Sender: FDA-Public Use
  Company Number: PHHY2009FR31386

PATIENT
  Age: 54 Year
  Sex: Female

DRUGS (2)
  1. RASILEZ [Suspect]
     Indication: HYPERTENSION
     Dosage: UNK
  2. HYPERICUM PERFORATUM [Interacting]
     Dosage: UNK
     Dates: start: 20090718, end: 20090721

REACTIONS (6)
  - BLOOD PRESSURE INCREASED [None]
  - DRUG INTERACTION [None]
  - EPISTAXIS [None]
  - FATIGUE [None]
  - HEADACHE [None]
  - SENSATION OF HEAVINESS [None]
